FAERS Safety Report 5078089-9 (Version None)
Quarter: 2006Q3

REPORT INFORMATION
  Report Type: 
  Country: None (occurrence: None)
  Receive Date: 20060720
  Receipt Date: 20060421
  Transmission Date: 20061208
  Serious: Yes (Life-Threatening, Hospitalization)
  Sender: FDA-Public Use
  Company Number: 2006MP000435

PATIENT
  Age: 80 Year
  Sex: Male

DRUGS (4)
  1. AGGRASTAT [Suspect]
     Indication: ACUTE CORONARY SYNDROME
     Dosage: 0.1 UG/KG/MIN;IV
     Route: 042
     Dates: start: 20060322, end: 20060323
  2. AGGRASTAT [Suspect]
     Indication: MYOCARDIAL INFARCTION
     Dosage: 0.1 UG/KG/MIN;IV
     Route: 042
     Dates: start: 20060322, end: 20060323
  3. ASPIRIN [Suspect]
     Indication: CORONARY ARTERY DISEASE
     Dosage: 100 MG;TID;PO
     Route: 048
  4. CLOPIDOGREL BISULFATE [Suspect]
     Indication: CORONARY ARTERY DISEASE
     Dosage: SEE IMAGE
     Route: 048

REACTIONS (1)
  - LOWER GASTROINTESTINAL HAEMORRHAGE [None]
